FAERS Safety Report 7975799-8 (Version None)
Quarter: 2011Q4

REPORT INFORMATION
  Report Type: 
  Country: None (occurrence: None)
  Receive Date: 20111213
  Receipt Date: 20110926
  Transmission Date: 20120403
  Serious: Yes (Other)
  Sender: FDA-Public Use
  Company Number: US-AMGEN-USASP2011049728

PATIENT
  Sex: Male

DRUGS (2)
  1. ENBREL [Suspect]
     Indication: RHEUMATOID ARTHRITIS
     Dosage: 50 MG, QWK
     Dates: start: 20060101, end: 20110801
  2. PLAQUENIL [Concomitant]
     Dosage: UNK
     Dates: start: 20110901

REACTIONS (10)
  - DIZZINESS [None]
  - BREAKTHROUGH PAIN [None]
  - ABDOMINAL PAIN [None]
  - MICTURITION URGENCY [None]
  - DYSURIA [None]
  - INFLAMMATION [None]
  - ANAL SPASM [None]
  - RASH [None]
  - ANTINUCLEAR ANTIBODY POSITIVE [None]
  - NIGHT SWEATS [None]
